FAERS Safety Report 10462252 (Version 1)
Quarter: 2014Q3

REPORT INFORMATION
  Report Type: Spontaneous
  Country: US (occurrence: US)
  Receive Date: 20140918
  Receipt Date: 20140918
  Transmission Date: 20150326
  Serious: No
  Sender: FDA-Public Use
  Company Number: US-PFIZER INC-2014258318

PATIENT
  Age: 35 Year
  Sex: Male
  Weight: 86.17 kg

DRUGS (4)
  1. VIAGRA [Suspect]
     Active Substance: SILDENAFIL CITRATE
     Indication: PENIS DISORDER
     Dosage: ^100^ WEEKLY
     Dates: start: 201408
  2. XANAX [Suspect]
     Active Substance: ALPRAZOLAM
     Indication: ANXIETY
     Dosage: 5 MG, AS NEEDED
     Dates: start: 20140913
  3. IBUPROFEN. [Concomitant]
     Active Substance: IBUPROFEN
     Dosage: UNK
  4. NAPROXEN. [Concomitant]
     Active Substance: NAPROXEN
     Dosage: UNK

REACTIONS (3)
  - Decreased appetite [Unknown]
  - Dyspepsia [Unknown]
  - Flushing [Unknown]

NARRATIVE: CASE EVENT DATE: 20140915
